FAERS Safety Report 19846700 (Version 1)
Quarter: 2021Q3

REPORT INFORMATION
  Report Type: Other
  Country: DE (occurrence: DE)
  Receive Date: 20210917
  Receipt Date: 20210917
  Transmission Date: 20211014
  Serious: Yes (Hospitalization)
  Sender: FDA-Public Use
  Company Number: DE-ROCHE-2261443

PATIENT
  Sex: Male

DRUGS (5)
  1. OCREVUS [Suspect]
     Active Substance: OCRELIZUMAB
     Indication: PRIMARY PROGRESSIVE MULTIPLE SCLEROSIS
     Route: 042
     Dates: start: 20180626
  2. BACLOFEN. [Concomitant]
     Active Substance: BACLOFEN
  3. DULOXETINE. [Concomitant]
     Active Substance: DULOXETINE
  4. COMIRNATY [Suspect]
     Active Substance: TOZINAMERAN
     Indication: PRODUCT USED FOR UNKNOWN INDICATION
     Route: 065
     Dates: start: 20210520, end: 20210603
  5. FAMPYRA [Concomitant]
     Active Substance: DALFAMPRIDINE

REACTIONS (4)
  - Fall [Unknown]
  - Paraesthesia [Recovered/Resolved]
  - Humerus fracture [Recovered/Resolved]
  - SARS-CoV-2 antibody test positive [Not Recovered/Not Resolved]

NARRATIVE: CASE EVENT DATE: 20180710
